FAERS Safety Report 9277369 (Version 1)
Quarter: 2013Q2

REPORT INFORMATION
  Report Type: Spontaneous
  Country: US (occurrence: None)
  Receive Date: 20130503
  Receipt Date: 20130503
  Transmission Date: 20140414
  Serious: Yes (Life-Threatening, Hospitalization, Disabling)
  Sender: FDA-Public Use
  Company Number: None

PATIENT
  Age: 41 Year
  Sex: Female
  Weight: 60.78 kg

DRUGS (3)
  1. ROLAIDS [Suspect]
     Indication: GASTROENTERITIS
     Route: 048
     Dates: start: 1965, end: 2004
  2. MYLANTA [Suspect]
     Indication: GASTROENTERITIS
     Dosage: 10 ML-20 ML 2 TEASPONS TWICE DAILY ORAL
     Dates: start: 1965, end: 2004
  3. MAALOX [Concomitant]

REACTIONS (7)
  - Blood aluminium increased [None]
  - Renal failure chronic [None]
  - Osteoporosis [None]
  - Hypotension [None]
  - Muscle fatigue [None]
  - Dementia [None]
  - Poisoning [None]
